FAERS Safety Report 4874447-3 (Version None)
Quarter: 2006Q1

REPORT INFORMATION
  Report Type: 
  Country: None (occurrence: None)
  Receive Date: 20060104
  Receipt Date: 20051220
  Transmission Date: 20060701
  Serious: Yes (Death)
  Sender: FDA-Public Use
  Company Number: 2005S1012069

PATIENT
  Age: 55 Year
  Sex: Male

DRUGS (3)
  1. CLOZAPINE [Suspect]
     Indication: SCHIZOAFFECTIVE DISORDER
     Dosage: 100 MG; QAM; ORAL; 300 MG; HS; ORAL
     Route: 048
     Dates: start: 20021024
  2. CLOZAPINE [Suspect]
     Indication: SCHIZOAFFECTIVE DISORDER
     Dosage: 100 MG; QAM; ORAL; 300 MG; HS; ORAL
     Route: 048
     Dates: start: 20021024
  3. VALPROATE SODIUM [Concomitant]

REACTIONS (1)
  - LUNG NEOPLASM MALIGNANT [None]
